FAERS Safety Report 25897386 (Version 4)
Quarter: 2025Q4

REPORT INFORMATION
  Report Type: Spontaneous
  Country: EU (occurrence: EU)
  Receive Date: 20251008
  Receipt Date: 20251201
  Transmission Date: 20260117
  Serious: No
  Sender: PFIZER
  Company Number: EU-PFIZER INC-PV202500114367

PATIENT
  Sex: Male

DRUGS (2)
  1. HYMPAVZI [Suspect]
     Active Substance: MARSTACIMAB-HNCQ
  2. HYMPAVZI [Suspect]
     Active Substance: MARSTACIMAB-HNCQ

REACTIONS (3)
  - Injury associated with device [Recovered/Resolved]
  - Accidental exposure to product [Unknown]
  - Occupational exposure to product [Unknown]

NARRATIVE: CASE EVENT DATE: 20250923
